FAERS Safety Report 21055128 (Version 2)
Quarter: 2022Q3

REPORT INFORMATION
  Report Type: Report from Study
  Country: US (occurrence: US)
  Receive Date: 20220707
  Receipt Date: 20220718
  Transmission Date: 20221027
  Serious: Yes (Death, Hospitalization, Other)
  Sender: FDA-Public Use
  Company Number: US-ACADIA PHARMACEUTICALS INC.-ACA-2022-PIM-002177

PATIENT
  Age: 73 Year
  Sex: Male

DRUGS (15)
  1. NUPLAZID [Suspect]
     Active Substance: PIMAVANSERIN TARTRATE
     Indication: Parkinson^s disease
     Dosage: 34 MILLIGRAM, QD EVERY MORNING
     Route: 048
     Dates: end: 20220629
  2. HUMALOG [Concomitant]
     Active Substance: INSULIN LISPRO
  3. JANUMET [Concomitant]
     Active Substance: METFORMIN HYDROCHLORIDE\SITAGLIPTIN PHOSPHATE
  4. LEVEMIR [Concomitant]
     Active Substance: INSULIN DETEMIR
  5. CARBIDOPA\LEVODOPA [Concomitant]
     Active Substance: CARBIDOPA\LEVODOPA
  6. NIACIN [Concomitant]
     Active Substance: NIACIN
  7. LASIX [Concomitant]
     Active Substance: FUROSEMIDE
  8. VITAMIN D3 [Concomitant]
     Active Substance: CHOLECALCIFEROL
  9. ECOTRIN [Concomitant]
     Active Substance: ASPIRIN
  10. INVOKANA [Concomitant]
     Active Substance: CANAGLIFLOZIN
  11. POTASSIUM CHLORIDE [Concomitant]
     Active Substance: POTASSIUM CHLORIDE
  12. QUETIAPINE FUMARATE [Concomitant]
     Active Substance: QUETIAPINE FUMARATE
  13. LOVASTATIN [Concomitant]
     Active Substance: LOVASTATIN
  14. CARBIDOPA, LEVODOPA AND ENTACAPONE [Suspect]
     Active Substance: CARBIDOPA\ENTACAPONE\LEVODOPA
  15. FISH OIL [Concomitant]
     Active Substance: FISH OIL

REACTIONS (1)
  - Pneumonia [Fatal]

NARRATIVE: CASE EVENT DATE: 20220614
